FAERS Safety Report 7706763-1 (Version None)
Quarter: 2011Q3

REPORT INFORMATION
  Report Type: 
  Country: None (occurrence: None)
  Receive Date: 20110818
  Receipt Date: 20110815
  Transmission Date: 20111222
  Serious: Yes (Hospitalization)
  Sender: FDA-Public Use
  Company Number: TRP_07892_2011

PATIENT
  Age: 43 Year
  Sex: Male

DRUGS (2)
  1. RIBAVIRIN [Suspect]
     Indication: HEPATITIS C
     Dosage: (800 MG/DAY)
  2. INTERFERON ALFA [Suspect]
     Indication: HEPATITIS C
     Dosage: (180 MG 1X/WEEK)

REACTIONS (9)
  - LOSS OF CONSCIOUSNESS [None]
  - ANXIETY [None]
  - DECREASED APPETITE [None]
  - WEIGHT DECREASED [None]
  - ATRIOVENTRICULAR BLOCK COMPLETE [None]
  - HYPERHIDROSIS [None]
  - MALAISE [None]
  - DYSPNOEA [None]
  - DISCOMFORT [None]
